FAERS Safety Report 6012344-0 (Version None)
Quarter: 2008Q4

REPORT INFORMATION
  Report Type: 
  Country: None (occurrence: None)
  Receive Date: 20081218
  Receipt Date: 20080826
  Transmission Date: 20090506
  Serious: No
  Sender: FDA-Public Use
  Company Number: US-ASTRAZENECA-2008UW17578

PATIENT
  Age: 33 Year
  Sex: Female

DRUGS (19)
  1. SYMBICORT [Suspect]
     Indication: ASTHMA
     Dosage: 160/4.5 MCG, 2 PUFFS TWICE DAILY
     Route: 055
     Dates: start: 20080819
  2. SUDAFED 12 HOUR [Concomitant]
  3. IBUPROFEN [Concomitant]
  4. NEXIUM [Concomitant]
     Route: 048
  5. SINGULAIR [Concomitant]
  6. LORATADINE [Concomitant]
  7. WELLBUTRIN XL [Concomitant]
  8. CRESTOR [Concomitant]
     Route: 048
  9. METFORMIN HCL [Concomitant]
  10. MULTI-VITAMINS [Concomitant]
  11. RACOL-RITE [Concomitant]
  12. RESTORIL [Concomitant]
  13. VERAPAMIL [Concomitant]
  14. PREDNISONE TAB [Concomitant]
  15. QUINAPRIL [Concomitant]
  16. RELPAX [Concomitant]
  17. XOPENEX [Concomitant]
  18. HUMALOG [Concomitant]
  19. LANTUS [Concomitant]

REACTIONS (1)
  - TONGUE DISCOLOURATION [None]
